FAERS Safety Report 24731838 (Version 2)
Quarter: 2025Q3

REPORT INFORMATION
  Report Type: Report from Study
  Country: US (occurrence: US)
  Receive Date: 20241213
  Receipt Date: 20250809
  Transmission Date: 20251020
  Serious: Yes (Hospitalization, Other)
  Sender: ALEXION PHARMACEUTICALS
  Company Number: US-AstraZeneca-CH-00711378A

PATIENT
  Age: 79 Year
  Sex: Female

DRUGS (1)
  1. EPLONTERSEN SODIUM [Suspect]
     Active Substance: EPLONTERSEN SODIUM
     Indication: Hereditary ATTR amyloid cardiomyopathy
     Dosage: 45 MILLIGRAM, QMONTH

REACTIONS (1)
  - Acute kidney injury [Unknown]
